FAERS Safety Report 6254428-8 (Version None)
Quarter: 2009Q3

REPORT INFORMATION
  Report Type: 
  Country: None (occurrence: None)
  Receive Date: 20090702
  Receipt Date: 20090619
  Transmission Date: 20100115
  Serious: Yes (Other)
  Sender: FDA-Public Use
  Company Number: PT-BIOGENIDEC-2009BI019203

PATIENT
  Age: 32 Year
  Sex: Female
  Weight: 55 kg

DRUGS (2)
  1. TYSABRI [Suspect]
     Indication: MULTIPLE SCLEROSIS
     Route: 042
     Dates: start: 20081113
  2. FLUOXETINE HCL [Concomitant]

REACTIONS (1)
  - LEUKOCYTOSIS [None]
